FAERS Safety Report 18010102 (Version 15)
Quarter: 2020Q3

REPORT INFORMATION
  Report Type: Report from Study
  Country: CA (occurrence: CA)
  Receive Date: 20200710
  Receipt Date: 20200923
  Transmission Date: 20201103
  Serious: Yes (Death, Life-Threatening, Hospitalization)
  Sender: FDA-Public Use
  Company Number: CA-EISAI MEDICAL RESEARCH-EC-2020-077238

PATIENT
  Age: 54 Year
  Sex: Female
  Weight: 70.4 kg

DRUGS (6)
  1. PEMBROLIZUMAB. [Suspect]
     Active Substance: PEMBROLIZUMAB
     Indication: ENDOMETRIAL CANCER
     Route: 041
     Dates: start: 20190918, end: 20190918
  2. LENVATINIB [Suspect]
     Active Substance: LENVATINIB
     Route: 048
     Dates: start: 20200705, end: 20200705
  3. LENVATINIB [Suspect]
     Active Substance: LENVATINIB
     Dosage: STARTING DOSE 20 MG, FLUCTUATED DOSE
     Route: 048
     Dates: start: 20191023, end: 20200704
  4. SENOKOT [Concomitant]
     Active Substance: SENNOSIDES
     Dates: start: 20190911
  5. LENVATINIB [Suspect]
     Active Substance: LENVATINIB
     Indication: ENDOMETRIAL CANCER
     Route: 048
     Dates: start: 20190918, end: 20191001
  6. COLACE [Concomitant]
     Active Substance: DOCUSATE SODIUM
     Dosage: 30
     Dates: start: 20190912

REACTIONS (7)
  - Malignant neoplasm progression [Fatal]
  - Pneumonitis [Not Recovered/Not Resolved]
  - Right ventricular dysfunction [Not Recovered/Not Resolved]
  - Dyspnoea [Not Recovered/Not Resolved]
  - Fatigue [Not Recovered/Not Resolved]
  - Dehydration [Not Recovered/Not Resolved]
  - Pulmonary hypertension [Not Recovered/Not Resolved]

NARRATIVE: CASE EVENT DATE: 20190919
